FAERS Safety Report 8490626-0 (Version None)
Quarter: 2012Q3

REPORT INFORMATION
  Report Type: 
  Country: None (occurrence: None)
  Receive Date: 20120705
  Receipt Date: 20120625
  Transmission Date: 20120928
  Serious: Yes (Disabling)
  Sender: FDA-Public Use
  Company Number: AU-ABBOTT-12P-008-0941562-00

PATIENT
  Sex: Female

DRUGS (2)
  1. ETHINYL ESTRADIOL AND NORETHINDRONE [Concomitant]
     Indication: CONTRACEPTION
     Dates: start: 19900101
  2. HUMIRA [Suspect]
     Indication: SPONDYLITIS
     Route: 058
     Dates: start: 20100820, end: 20120525

REACTIONS (1)
  - LUPUS-LIKE SYNDROME [None]
